FAERS Safety Report 21554815 (Version 5)
Quarter: 2023Q2

REPORT INFORMATION
  Report Type: Spontaneous
  Country: PT (occurrence: PT)
  Receive Date: 20221104
  Receipt Date: 20230512
  Transmission Date: 20230721
  Serious: Yes (Hospitalization, Other)
  Sender: FDA-Public Use
  Company Number: PT-MYLANLABS-2022M1118958

PATIENT
  Age: 53 Year
  Sex: Female

DRUGS (1)
  1. ALPRAZOLAM [Suspect]
     Active Substance: ALPRAZOLAM
     Indication: Headache
     Dosage: 5 MG, TOTAL (20 TABLETS OF ALPRAZOLAM 0.25 MG)
     Route: 048

REACTIONS (6)
  - Hypertensive encephalopathy [Recovered/Resolved]
  - Hypertension [Unknown]
  - Posterior reversible encephalopathy syndrome [Unknown]
  - Confusional state [Recovered/Resolved]
  - Toxicity to various agents [Recovered/Resolved]
  - Intentional overdose [Unknown]
